FAERS Safety Report 23355740 (Version 1)
Quarter: 2024Q1

REPORT INFORMATION
  Report Type: Spontaneous
  Country: US (occurrence: US)
  Receive Date: 20240102
  Receipt Date: 20240102
  Transmission Date: 20240409
  Serious: Yes (Hospitalization)
  Sender: FDA-Public Use
  Company Number: US-STERISCIENCE B.V.-2023-ST-000362

PATIENT
  Age: 74 Year
  Sex: Male

DRUGS (7)
  1. VANCOMYCIN [Suspect]
     Active Substance: VANCOMYCIN
     Indication: Endophthalmitis
     Dosage: UNK
     Route: 065
  2. VANCOMYCIN [Suspect]
     Active Substance: VANCOMYCIN
     Indication: Streptococcal infection
  3. CEFTAZIDIME [Suspect]
     Active Substance: CEFTAZIDIME
     Indication: Endophthalmitis
     Dosage: UNK
     Route: 065
  4. CEFTAZIDIME [Suspect]
     Active Substance: CEFTAZIDIME
     Indication: Streptococcal infection
  5. DEXAMETHASONE [Suspect]
     Active Substance: DEXAMETHASONE
     Indication: Endophthalmitis
     Dosage: UNK
     Route: 065
  6. DEXAMETHASONE [Suspect]
     Active Substance: DEXAMETHASONE
     Indication: Streptococcal infection
  7. AFLIBERCEPT [Concomitant]
     Active Substance: AFLIBERCEPT
     Indication: Macular degeneration
     Dosage: TOTAL 24 INJECTION RECEIVED
     Dates: start: 2013

REACTIONS (1)
  - Drug ineffective [Unknown]
